FAERS Safety Report 5354560-7 (Version None)
Quarter: 2007Q2

REPORT INFORMATION
  Report Type: 
  Country: None (occurrence: None)
  Receive Date: 20070612
  Receipt Date: 20070604
  Transmission Date: 20071010
  Serious: Yes (Life-Threatening)
  Sender: FDA-Public Use
  Company Number: JP-GENENTECH-242664

PATIENT
  Age: 67 Year
  Sex: Male

DRUGS (10)
  1. RITUXAN [Suspect]
     Indication: NON-HODGKIN'S LYMPHOMA
     Dosage: 375 MG, QD
     Route: 042
     Dates: start: 20060801, end: 20061201
  2. RITUXAN [Suspect]
     Dates: start: 20070301
  3. ADRIAMYCIN PFS [Concomitant]
     Indication: NON-HODGKIN'S LYMPHOMA
  4. ENDOXAN [Concomitant]
     Indication: NON-HODGKIN'S LYMPHOMA
  5. ONCOVIN [Concomitant]
     Indication: NON-HODGKIN'S LYMPHOMA
  6. PREDONINE [Concomitant]
     Indication: NON-HODGKIN'S LYMPHOMA
  7. MITOXANTRONE [Concomitant]
     Indication: NON-HODGKIN'S LYMPHOMA
  8. ETOPOSIDE [Concomitant]
     Indication: NON-HODGKIN'S LYMPHOMA
  9. CARBOPLATIN [Concomitant]
     Indication: NON-HODGKIN'S LYMPHOMA
  10. PREDNISOLONE [Concomitant]
     Indication: NON-HODGKIN'S LYMPHOMA

REACTIONS (1)
  - HEPATITIS B [None]
